FAERS Safety Report 5885111-6 (Version None)
Quarter: 2008Q3

REPORT INFORMATION
  Report Type: 
  Country: None (occurrence: None)
  Receive Date: 20080916
  Receipt Date: 20080909
  Transmission Date: 20090109
  Serious: Yes (Death)
  Sender: FDA-Public Use
  Company Number: JP-MERCK-0809USA01633

PATIENT
  Age: 81 Year
  Sex: Female

DRUGS (10)
  1. HYZAAR [Suspect]
     Indication: HYPERTENSION
     Route: 048
     Dates: start: 20070706, end: 20080624
  2. ALFASULY [Concomitant]
     Route: 048
  3. URSO 250 [Concomitant]
     Route: 048
  4. COSPANON [Concomitant]
     Route: 048
  5. TAPIZOL [Concomitant]
     Route: 048
  6. BIOFERMIN [Concomitant]
     Route: 048
  7. BUSCOPAN [Concomitant]
     Route: 048
  8. S ADCHNON [Concomitant]
     Route: 048
  9. PREDNISOLONE [Concomitant]
     Route: 048
  10. MOBIC [Concomitant]
     Route: 048

REACTIONS (2)
  - LARGE INTESTINE CARCINOMA [None]
  - METASTASES TO LIVER [None]
